FAERS Safety Report 4597687-X (Version None)
Quarter: 2005Q1

REPORT INFORMATION
  Report Type: 
  Country: None (occurrence: None)
  Receive Date: 20050303
  Receipt Date: 20050222
  Transmission Date: 20050727
  Serious: Yes (Other)
  Sender: FDA-Public Use
  Company Number: US-JNJFOC-20041203124

PATIENT
  Sex: Male

DRUGS (1)
  1. TOPAMAX [Suspect]
     Dosage: 8 MG/KG
     Route: 065

REACTIONS (3)
  - COLITIS [None]
  - METABOLIC ACIDOSIS [None]
  - MYOCLONIC EPILEPSY [None]
